FAERS Safety Report 19925653 (Version 1)
Quarter: 2021Q4

REPORT INFORMATION
  Report Type: Spontaneous
  Country: DE (occurrence: DE)
  Receive Date: 20211006
  Receipt Date: 20211006
  Transmission Date: 20220303
  Serious: Yes (Other)
  Sender: FDA-Public Use
  Company Number: None

PATIENT
  Age: 24 Year
  Sex: Female
  Weight: 60 kg

DRUGS (3)
  1. PREDNISOLONE [Interacting]
     Active Substance: PREDNISOLONE
     Indication: Precursor T-lymphoblastic lymphoma/leukaemia
     Dosage: 60 MILLIGRAM/SQ. METER, QD, 3X20MG/M? P.O. (3 ADMINISTRATIONS) DAY 1-14.
     Route: 048
     Dates: start: 2015
  2. PEG/L-ASPARAGINASE [Interacting]
     Active Substance: PEGASPARGASE
     Indication: Product used for unknown indication
     Dosage: UNK
  3. CIPROFLOXACIN HYDROCHLORIDE [Interacting]
     Active Substance: CIPROFLOXACIN HYDROCHLORIDE
     Indication: Product used for unknown indication
     Dosage: UNK

REACTIONS (5)
  - Osteonecrosis [Recovered/Resolved with Sequelae]
  - Gait disturbance [Recovered/Resolved]
  - Arthralgia [Recovered/Resolved]
  - Pain [Unknown]
  - Drug interaction [Unknown]

NARRATIVE: CASE EVENT DATE: 20150101
